FAERS Safety Report 15848673 (Version 1)
Quarter: 2019Q1

REPORT INFORMATION
  Report Type: Spontaneous
  Country: US (occurrence: US)
  Receive Date: 20190121
  Receipt Date: 20190121
  Transmission Date: 20190417
  Serious: No
  Sender: FDA-Public Use
  Company Number: US-AGIOS-1811US00285

PATIENT
  Age: 67 Year
  Sex: Female

DRUGS (3)
  1. TIBSOVO [Suspect]
     Active Substance: IVOSIDENIB
     Indication: MYELODYSPLASTIC SYNDROME
     Dosage: 250 MILLIGRAM, QD
     Route: 048
     Dates: start: 20181031, end: 20181107
  2. TIBSOVO [Suspect]
     Active Substance: IVOSIDENIB
     Dosage: 500 MILLIGRAM, QD
     Route: 048
     Dates: start: 20181108, end: 20181110
  3. TIBSOVO [Suspect]
     Active Substance: IVOSIDENIB
     Dosage: 500 MILLIGRAM, QD
     Route: 048
     Dates: start: 20181112

REACTIONS (5)
  - Atrial fibrillation [Unknown]
  - Bradycardia [Unknown]
  - Electrocardiogram QT prolonged [Not Recovered/Not Resolved]
  - Arrhythmia [Unknown]
  - Off label use [Unknown]

NARRATIVE: CASE EVENT DATE: 2018
